FAERS Safety Report 25847577 (Version 1)
Quarter: 2025Q3

REPORT INFORMATION
  Report Type: Spontaneous
  Country: CN (occurrence: CN)
  Receive Date: 20250925
  Receipt Date: 20250925
  Transmission Date: 20251021
  Serious: Yes (Disabling, Other)
  Sender: DAIICHI
  Company Number: CN-DSJP-DS-2025-166157-CN

PATIENT
  Sex: Female
  Weight: 66.5 kg

DRUGS (1)
  1. TRASTUZUMAB DERUXTECAN [Suspect]
     Active Substance: TRASTUZUMAB DERUXTECAN
     Indication: Targeted cancer therapy
     Dosage: 359 MG, ONCE EVERY 3 WK (ONCE EVERY IN 21 DAYS)
     Route: 041
     Dates: start: 20250824, end: 20250913

REACTIONS (12)
  - Blood creatinine increased [Recovering/Resolving]
  - Haematemesis [Recovering/Resolving]
  - Platelet count decreased [Recovering/Resolving]
  - Hypocalcaemia [Recovering/Resolving]
  - Hyperkalaemia [Recovering/Resolving]
  - White blood cell count increased [Recovering/Resolving]
  - Pyrexia [Recovering/Resolving]
  - Vomiting [Recovering/Resolving]
  - Diarrhoea [Recovering/Resolving]
  - Frigophobia [Recovering/Resolving]
  - Nausea [Recovering/Resolving]
  - Vomiting [Recovering/Resolving]

NARRATIVE: CASE EVENT DATE: 20250101
